FAERS Safety Report 7381040-X (Version None)
Quarter: 2011Q1

REPORT INFORMATION
  Report Type: 
  Country: None (occurrence: None)
  Receive Date: 20110329
  Receipt Date: 20100331
  Transmission Date: 20110831
  Serious: Yes (Other)
  Sender: FDA-Public Use
  Company Number: US-AMGEN-QUU398811

PATIENT
  Age: 50 Year
  Sex: Female
  Weight: 93.5 kg

DRUGS (14)
  1. GLIBENCLAMIDE [Concomitant]
     Dosage: UNK UNK, UNK
     Dates: start: 20091203
  2. LISINOPRIL [Concomitant]
     Dosage: UNK UNK, UNK
     Dates: start: 20091203
  3. ISOSORBIDE MONONITRATE [Concomitant]
     Dosage: UNK UNK, UNK
     Dates: start: 20091203
  4. RENALTABS [Concomitant]
     Dosage: UNK UNK, QD
     Dates: start: 20100115
  5. METOPROLOL SUCCINATE [Concomitant]
     Dosage: UNK UNK, UNK
     Dates: start: 20091203
  6. CLONIDINE [Concomitant]
     Dosage: UNK UNK, UNK
     Dates: start: 20091203
  7. RENAGEL [Concomitant]
     Dosage: 1600 MG, TID
  8. ERGOCALCIFEROL [Concomitant]
     Dosage: 50000 IU, QWK
     Dates: start: 20091207
  9. DOCUSATE SODIUM [Concomitant]
     Dosage: UNK UNK, UNK
     Dates: start: 20091203
  10. GABAPENTIN [Concomitant]
     Dosage: UNK UNK, UNK
     Dates: start: 20091203
  11. SENSIPAR [Suspect]
     Indication: HYPERPARATHYROIDISM SECONDARY
     Dosage: 30 MG, QD
     Route: 048
     Dates: start: 20100205, end: 20100207
  12. AMLODIPINE BESYLATE [Concomitant]
     Dosage: UNK UNK, UNK
     Dates: start: 20091203
  13. PREGABALIN [Concomitant]
     Dosage: UNK UNK, UNK
     Dates: start: 20091203
  14. LEVOTHYROXINE SODIUM [Concomitant]
     Dosage: UNK UNK, UNK
     Dates: start: 20091203

REACTIONS (1)
  - URTICARIA [None]
